FAERS Safety Report 5108258-0 (Version None)
Quarter: 2006Q3

REPORT INFORMATION
  Report Type: 
  Country: None (occurrence: None)
  Receive Date: 20060919
  Receipt Date: 20060912
  Transmission Date: 20061208
  Serious: Yes (Hospitalization)
  Sender: FDA-Public Use
  Company Number: 2006CG01483

PATIENT
  Age: 26 Year
  Sex: Female

DRUGS (20)
  1. NEXIUM [Suspect]
     Route: 048
     Dates: start: 20060814, end: 20060823
  2. DEPAKENE [Concomitant]
     Indication: EPILEPSY
     Route: 048
     Dates: start: 19920101, end: 20060818
  3. DEPAKENE [Concomitant]
     Route: 048
     Dates: start: 20060819
  4. UN-ALFA [Concomitant]
     Indication: HYPOPARATHYROIDISM
     Dates: start: 19950101
  5. MYAMBUTOL [Concomitant]
     Route: 048
     Dates: start: 20060812
  6. RIFATER [Concomitant]
     Route: 048
     Dates: start: 20060812
  7. SPECIAFOLDINE [Concomitant]
     Dates: start: 20060812
  8. CACIT D3 [Concomitant]
     Dates: end: 20060814
  9. ROCEPHIN [Concomitant]
     Dates: start: 20060701, end: 20060811
  10. OFLOCET [Concomitant]
     Dates: start: 20060701, end: 20060811
  11. SPASFON [Concomitant]
     Dates: start: 20060701, end: 20060808
  12. SPASFON [Concomitant]
     Dates: start: 20060814, end: 20060821
  13. LOVENOX [Concomitant]
     Dates: start: 20060701, end: 20060809
  14. FRAXIPARINE [Concomitant]
     Dates: start: 20060810, end: 20060817
  15. ATARAX [Concomitant]
     Dates: end: 20060823
  16. ATARAX [Concomitant]
  17. HYDROCORTISONE [Concomitant]
     Dates: end: 20060815
  18. HYDROCORTISONE [Concomitant]
     Dates: start: 20060824
  19. KALEORID [Concomitant]
     Dates: start: 20060811
  20. SUCRALFATE [Concomitant]
     Dates: start: 20060815

REACTIONS (2)
  - NEUTROPENIA [None]
  - THROMBOCYTOPENIA [None]
